FAERS Safety Report 25229578 (Version 1)
Quarter: 2025Q2

REPORT INFORMATION
  Report Type: Spontaneous
  Country: US (occurrence: US)
  Receive Date: 20250423
  Receipt Date: 20250423
  Transmission Date: 20250717
  Serious: Yes (Hospitalization)
  Sender: MYLAN
  Company Number: US-MYLANLABS-2025M1034553

PATIENT
  Age: 42 Year
  Sex: Female

DRUGS (1)
  1. SUMATRIPTAN [Suspect]
     Active Substance: SUMATRIPTAN
     Indication: Migraine
     Dosage: UNK UNK, Q2H, RESPIRATORY (INHALATION), DURING MIGRAINE EPISODE

REACTIONS (1)
  - Colitis ischaemic [Recovered/Resolved]
